FAERS Safety Report 8153437-1 (Version None)
Quarter: 2012Q1

REPORT INFORMATION
  Report Type: 
  Country: None (occurrence: None)
  Receive Date: 20120221
  Receipt Date: 20120206
  Transmission Date: 20120608
  Serious: Yes (Other)
  Sender: FDA-Public Use
  Company Number: US-ROCHE-1037623

PATIENT
  Age: 35 Year
  Sex: Female

DRUGS (4)
  1. KLONOPIN [Suspect]
     Indication: ILL-DEFINED DISORDER
     Route: 048
  2. DILAUDID [Concomitant]
  3. ZANAFLEX [Concomitant]
  4. MORPHINE [Concomitant]

REACTIONS (11)
  - CARDIAC DISORDER [None]
  - HAEMORRHAGE [None]
  - PAIN [None]
  - FEELING ABNORMAL [None]
  - MOTOR DYSFUNCTION [None]
  - AMNESIA [None]
  - HYPOTENSION [None]
  - SOMNOLENCE [None]
  - PALPITATIONS [None]
  - LOSS OF CONSCIOUSNESS [None]
  - HEAD INJURY [None]
